FAERS Safety Report 16478495 (Version 3)
Quarter: 2019Q3

REPORT INFORMATION
  Report Type: Spontaneous
  Country: PR (occurrence: PR)
  Receive Date: 20190626
  Receipt Date: 20190805
  Transmission Date: 20191004
  Serious: No
  Sender: FDA-Public Use
  Company Number: PR-PFIZER INC-2019271956

PATIENT
  Age: 45 Year
  Sex: Female

DRUGS (2)
  1. XELJANZ [Suspect]
     Active Substance: TOFACITINIB CITRATE
     Indication: RHEUMATOID ARTHRITIS
     Dosage: 1 TABLET, 2X/DAY
     Dates: start: 20190520, end: 20190612
  2. XELJANZ [Suspect]
     Active Substance: TOFACITINIB CITRATE
     Dosage: 5 MG, 2X/DAY
     Dates: start: 20190520

REACTIONS (5)
  - Respiratory disorder [Unknown]
  - Headache [Unknown]
  - Rash [Unknown]
  - Tendonitis [Unknown]
  - Dizziness [Unknown]
